FAERS Safety Report 4881549-4 (Version None)
Quarter: 2006Q1

REPORT INFORMATION
  Report Type: 
  Country: None (occurrence: None)
  Receive Date: 20060116
  Receipt Date: 20060113
  Transmission Date: 20060701
  Serious: Yes (Hospitalization)
  Sender: FDA-Public Use
  Company Number: SE-GLAXOSMITHKLINE-B0406538A

PATIENT
  Age: 60 Year
  Sex: Female

DRUGS (2)
  1. AVANDAMET [Suspect]
     Indication: DIABETES MELLITUS
     Route: 065
  2. METFORMIN [Concomitant]
     Dosage: 2500MG UNKNOWN

REACTIONS (2)
  - COMA [None]
  - HYPOGLYCAEMIA [None]
